FAERS Safety Report 10945808 (Version 1)
Quarter: 2015Q1

REPORT INFORMATION
  Report Type: Spontaneous
  Country: US (occurrence: None)
  Receive Date: 20150202
  Receipt Date: 20150202
  Transmission Date: 20150721
  Serious: No
  Sender: FDA-Public Use
  Company Number: TPA2009A03630

PATIENT
  Age: 84 Year
  Sex: Female
  Weight: 53.52 kg

DRUGS (2)
  1. PREVPAC [Suspect]
     Active Substance: AMOXICILLIN\CLARITHROMYCIN\LANSOPRAZOLE
     Indication: HELICOBACTER INFECTION
     Route: 048
     Dates: start: 20091022, end: 20091025
  2. NORVASC (AMLODIPINE) [Concomitant]

REACTIONS (12)
  - Heart rate irregular [None]
  - Swollen tongue [None]
  - Feeling abnormal [None]
  - Lip swelling [None]
  - Dysgeusia [None]
  - Oedema mouth [None]
  - Palpitations [None]
  - Gingival pain [None]
  - Tremor [None]
  - Dry mouth [None]
  - Dysphagia [None]
  - Nausea [None]

NARRATIVE: CASE EVENT DATE: 20091022
